FAERS Safety Report 9068990 (Version 1)
Quarter: 2013Q1

REPORT INFORMATION
  Report Type: Spontaneous
  Country: US (occurrence: US)
  Receive Date: 20130215
  Receipt Date: 20130215
  Transmission Date: 20140127
  Serious: Yes (Death)
  Sender: FDA-Public Use
  Company Number: US-BANPHARM-20130755

PATIENT
  Age: 33 Year
  Sex: Male

DRUGS (4)
  1. DIPHENHYDRAMINE [Suspect]
     Route: 048
  2. SALICYLATE [Suspect]
     Route: 048
  3. UNSPECIFIED INGREDIENT [Suspect]
     Route: 048
  4. MELATONIN [Suspect]
     Route: 048

REACTIONS (1)
  - Completed suicide [Fatal]
